FAERS Safety Report 4804845-5 (Version None)
Quarter: 2005Q4

REPORT INFORMATION
  Report Type: 
  Country: None (occurrence: None)
  Receive Date: 20051017
  Receipt Date: 20051003
  Transmission Date: 20060501
  Serious: Yes (Hospitalization, Other)
  Sender: FDA-Public Use
  Company Number: HQWYE833105OCT05

PATIENT
  Age: 62 Year
  Sex: Female
  Weight: 67.19 kg

DRUGS (3)
  1. PREMARIN [Suspect]
     Indication: VULVOVAGINAL DISCOMFORT
     Dosage: VAGINAL
     Route: 067
  2. GLYCERYL TRINITRATE (GLYCERYL TRINITRATE) [Concomitant]
  3. UNSPECIFIED ANTIHYPERTENSIVE AGENT (UNSPECIFIED ANTIHYPERTENSIVE AGENT [Concomitant]

REACTIONS (3)
  - BREAST CANCER FEMALE [None]
  - CARDIAC DISORDER [None]
  - LYMPHADENOPATHY [None]
